FAERS Safety Report 10161254 (Version 1)
Quarter: 2014Q2

REPORT INFORMATION
  Report Type: Spontaneous
  Country: US (occurrence: US)
  Receive Date: 20140508
  Receipt Date: 20140508
  Transmission Date: 20141212
  Serious: No
  Sender: FDA-Public Use
  Company Number: US-009507513-1405USA002603

PATIENT
  Age: 34 Year
  Sex: Female

DRUGS (1)
  1. CLARITIN ORAL SOLUTION [Suspect]
     Indication: HOUSE DUST ALLERGY
     Dosage: HALF A DOSE OF CHILDREN^S, UNKNOWN
     Route: 048

REACTIONS (3)
  - Adverse event [Unknown]
  - Underdose [Unknown]
  - Off label use [Unknown]
